FAERS Safety Report 4510237-9 (Version None)
Quarter: 2004Q4

REPORT INFORMATION
  Report Type: 
  Country: None (occurrence: None)
  Receive Date: 20041124
  Receipt Date: 20041111
  Transmission Date: 20050328
  Serious: Yes (Hospitalization)
  Sender: FDA-Public Use
  Company Number: JP-ROCHE-386660

PATIENT
  Age: 52 Year
  Sex: Male

DRUGS (3)
  1. VESANOID [Suspect]
     Indication: ACUTE PROMYELOCYTIC LEUKAEMIA
     Route: 048
  2. INOSINE [Suspect]
     Indication: ACUTE PROMYELOCYTIC LEUKAEMIA
     Route: 065
  3. ARABINOSYL CYTOSINE [Suspect]
     Indication: ACUTE PROMYELOCYTIC LEUKAEMIA
     Route: 065

REACTIONS (7)
  - BRAIN NEOPLASM [None]
  - GRANULOMA [None]
  - HEPATIC NECROSIS [None]
  - HEPATIC NEOPLASM [None]
  - MYCOBACTERIA BLOOD TEST POSITIVE [None]
  - TUBERCULOSIS LIVER [None]
  - TUBERCULOSIS OF CENTRAL NERVOUS SYSTEM [None]
